FAERS Safety Report 6133395-1 (Version None)
Quarter: 2009Q1

REPORT INFORMATION
  Report Type: 
  Country: None (occurrence: None)
  Receive Date: 20090326
  Receipt Date: 20090318
  Transmission Date: 20090719
  Serious: No
  Sender: FDA-Public Use
  Company Number: PHHY2009JP07069

PATIENT
  Age: 77 Year
  Sex: Male

DRUGS (4)
  1. NEORAL [Suspect]
     Indication: PSORIASIS
     Dosage: 150 MG/DAY
     Route: 048
     Dates: start: 20040101, end: 20080301
  2. PREDNISOLONE [Concomitant]
     Indication: PSORIASIS
     Dosage: 15 MG/DAY
     Route: 048
  3. PREDNISOLONE [Concomitant]
     Indication: PEMPHIGOID
     Dosage: 30 MG/DAY
     Route: 048
  4. CORTICOSTEROIDS [Concomitant]
     Indication: PSORIASIS

REACTIONS (1)
  - BLOOD CREATININE INCREASED [None]
